FAERS Safety Report 20823893 (Version 2)
Quarter: 2022Q2

REPORT INFORMATION
  Report Type: Spontaneous
  Country: US (occurrence: US)
  Receive Date: 20220513
  Receipt Date: 20220617
  Transmission Date: 20220720
  Serious: Yes (Other)
  Sender: FDA-Public Use
  Company Number: ENDG20-03395

PATIENT
  Age: 51 Year
  Sex: Female
  Weight: 123.36 kg

DRUGS (1)
  1. BOSENTAN [Suspect]
     Active Substance: BOSENTAN
     Indication: Pulmonary hypertension
     Dosage: 1 DF, BID
     Route: 048

REACTIONS (3)
  - Interstitial lung disease [Unknown]
  - Biopsy lung [Unknown]
  - Pleurisy [Unknown]

NARRATIVE: CASE EVENT DATE: 20220301
